FAERS Safety Report 8202541-8 (Version None)
Quarter: 2012Q1

REPORT INFORMATION
  Report Type: 
  Country: None (occurrence: None)
  Receive Date: 20120312
  Receipt Date: 20120309
  Transmission Date: 20120608
  Serious: Yes (Life-Threatening, Other)
  Sender: FDA-Public Use
  Company Number: IT-JNJFOC-20120109144

PATIENT
  Sex: Male

DRUGS (10)
  1. RISPERDAL [Suspect]
     Route: 048
     Dates: start: 20120124, end: 20120124
  2. PRAMIPEXOLE DIHYDROCHLORIDE [Concomitant]
     Indication: PRODUCT USED FOR UNKNOWN INDICATION
     Route: 048
     Dates: end: 20120124
  3. SEROQUEL [Suspect]
     Route: 048
     Dates: start: 19240124, end: 20120124
  4. SEROQUEL [Suspect]
     Indication: SCHIZOPHRENIA
     Route: 048
     Dates: start: 19240124, end: 20120124
  5. RISPERDAL [Suspect]
     Route: 048
     Dates: start: 20120124, end: 20120124
  6. LOPERAMIDE HYDROCHLORIDE [Concomitant]
     Indication: DIARRHOEA
     Route: 065
     Dates: end: 20120124
  7. RISPERDAL [Suspect]
     Indication: SCHIZOPHRENIA
     Route: 048
     Dates: start: 20120124, end: 20120124
  8. SEROQUEL [Suspect]
     Indication: PARANOIA
     Route: 048
     Dates: start: 20120124
  9. SEROQUEL [Suspect]
     Route: 048
     Dates: start: 20120124
  10. RISPERDAL [Suspect]
     Indication: PARANOIA
     Route: 048
     Dates: start: 20120124, end: 20120124

REACTIONS (3)
  - COMA [None]
  - SUICIDE ATTEMPT [None]
  - MULTIPLE DRUG OVERDOSE INTENTIONAL [None]
